FAERS Safety Report 14315950 (Version 10)
Quarter: 2018Q2

REPORT INFORMATION
  Report Type: Report from Study
  Country: ES (occurrence: ES)
  Receive Date: 20171221
  Receipt Date: 20180601
  Transmission Date: 20180711
  Serious: Yes (Hospitalization)
  Sender: FDA-Public Use
  Company Number: ES-BAXTER-2017BAX031535

PATIENT
  Age: 13 Year
  Sex: Female
  Weight: 37.7 kg

DRUGS (29)
  1. TRONOXAL 1G INYECTABLE [Suspect]
     Active Substance: IFOSFAMIDE
     Dosage: CYCLE 2
     Route: 042
     Dates: end: 201709
  2. ETOPOSIDE. [Suspect]
     Active Substance: ETOPOSIDE
     Indication: OSTEOSARCOMA
     Dosage: DAY-1 OF EACH 21 DAY CYCLE, DOSE: 100 MG/M2
     Route: 042
     Dates: start: 20170725, end: 20170725
  3. ETOPOSIDE. [Suspect]
     Active Substance: ETOPOSIDE
     Dosage: CYCLE 2
     Route: 042
     Dates: end: 201709
  4. ETOPOSIDE. [Suspect]
     Active Substance: ETOPOSIDE
     Dosage: CYCLE 3, DAY 1 TO DAY 3
     Route: 042
     Dates: start: 20170926, end: 20170928
  5. ETOPOSIDE. [Suspect]
     Active Substance: ETOPOSIDE
     Dosage: CYCLE 5, FOR 3 DAYS. ON 23NOV2017 LAST DOSE PRIOR TO SAE
     Route: 042
     Dates: start: 20171121, end: 20171123
  6. TRONOXAL 1G INYECTABLE [Suspect]
     Active Substance: IFOSFAMIDE
     Dosage: DAY-3 OF EACH 21 DAY CYCLE, DOSE: 3000 MG/M2
     Route: 042
     Dates: start: 20170727, end: 20170727
  7. ETOPOSIDE. [Suspect]
     Active Substance: ETOPOSIDE
     Dosage: DAY-3 OF EACH 21 DAY CYCLE, DOSE: 100 MG/M2
     Route: 042
     Dates: start: 20170727, end: 20170727
  8. METAMIZOL [Concomitant]
     Active Substance: METAMIZOLE SODIUM
     Indication: PAIN
     Route: 065
     Dates: start: 20171124
  9. TRONOXAL 1G INYECTABLE [Suspect]
     Active Substance: IFOSFAMIDE
     Indication: OSTEOSARCOMA
     Dosage: DAY-1 OF EACH 21 DAY CYCLE, DOSE: 3000 MG/M2
     Route: 042
     Dates: start: 20170725, end: 20170725
  10. TRONOXAL 1G INYECTABLE [Suspect]
     Active Substance: IFOSFAMIDE
     Dosage: DAY-2 OF EACH 21 DAY CYCLE, DOSE: 3000 MG/M2
     Route: 042
     Dates: start: 20170726, end: 20170726
  11. TRONOXAL 1G INYECTABLE [Suspect]
     Active Substance: IFOSFAMIDE
     Dosage: RESTARTED CYCLE 2 WITH 20% REDUCED DOSE
     Route: 042
     Dates: start: 20170829, end: 20170829
  12. TRONOXAL 1G INYECTABLE [Suspect]
     Active Substance: IFOSFAMIDE
     Dosage: CYCLE 4
     Route: 042
     Dates: start: 2017
  13. LENVATINIB [Suspect]
     Active Substance: LENVATINIB
     Indication: OSTEOSARCOMA
     Route: 048
     Dates: start: 20170725, end: 20170801
  14. LENVATINIB [Suspect]
     Active Substance: LENVATINIB
     Dosage: RESTARTED
     Route: 048
     Dates: start: 20170807, end: 20170828
  15. LENVATINIB [Suspect]
     Active Substance: LENVATINIB
     Dosage: CYCLE 4
     Route: 048
     Dates: start: 2017
  16. BENZYDAMINE [Concomitant]
     Active Substance: BENZYDAMINE
     Indication: VULVOVAGINAL PAIN
     Route: 065
     Dates: start: 20171124
  17. TRONOXAL 1G INYECTABLE [Suspect]
     Active Substance: IFOSFAMIDE
     Dosage: CYCLE 3, DAY 1 TO DAY 3
     Route: 042
     Dates: start: 20170926, end: 20170928
  18. TRONOXAL 1G INYECTABLE [Suspect]
     Active Substance: IFOSFAMIDE
     Dosage: CYCLE 5, FOR 3 DAYS. ON 23NOV2017 LAST DOSE PRIOR TO SAE
     Route: 042
     Dates: start: 20171121, end: 20171123
  19. DEXCHLORPHENIRAMINE [Concomitant]
     Active Substance: DEXCHLORPHENIRAMINE
     Indication: PRODUCT USED FOR UNKNOWN INDICATION
     Route: 065
  20. MACROGOL [Concomitant]
     Active Substance: POLYETHYLENE GLYCOLS
     Indication: CONSTIPATION
     Route: 065
     Dates: start: 20171124
  21. LENVATINIB [Suspect]
     Active Substance: LENVATINIB
     Route: 048
     Dates: start: 20170803, end: 20170803
  22. ETOPOSIDE. [Suspect]
     Active Substance: ETOPOSIDE
     Dosage: DAY-2 OF EACH 21 DAY CYCLE, DOSE: 100 MG/M2
     Route: 042
     Dates: start: 20170726, end: 20170726
  23. ETOPOSIDE. [Suspect]
     Active Substance: ETOPOSIDE
     Dosage: RESTARTED CYCLE 2 WITH 20% REDUCED DOSE
     Route: 042
     Dates: start: 20170829, end: 20170829
  24. LENVATINIB [Suspect]
     Active Substance: LENVATINIB
     Dosage: CYCLE 2 WITH 20% REDUCED DOSE, ONGOING
     Route: 048
     Dates: start: 20170829
  25. LENVATINIB [Suspect]
     Active Substance: LENVATINIB
     Dosage: CYCLE 5
     Route: 048
     Dates: start: 20171121, end: 20171129
  26. ETOPOSIDE. [Suspect]
     Active Substance: ETOPOSIDE
     Dosage: CYCLE 4
     Route: 042
     Dates: start: 2017
  27. PARACETAMOL [Concomitant]
     Active Substance: ACETAMINOPHEN
     Indication: PAIN
     Route: 065
     Dates: start: 20171124
  28. HYDROCORTISONE. [Concomitant]
     Active Substance: HYDROCORTISONE
     Indication: PRODUCT USED FOR UNKNOWN INDICATION
     Route: 065
  29. ONDANSETRON [Concomitant]
     Active Substance: ONDANSETRON
     Indication: VOMITING
     Route: 065
     Dates: start: 20171124

REACTIONS (7)
  - Gastritis [Recovered/Resolved]
  - Urinary tract infection [Recovered/Resolved]
  - Neutropenia [Recovered/Resolved]
  - Leukopenia [Recovered/Resolved]
  - Gastritis [Recovered/Resolved]
  - Cholecystitis [Recovered/Resolved]
  - Thrombocytopenia [Recovered/Resolved]

NARRATIVE: CASE EVENT DATE: 20170801
